FAERS Safety Report 4367262-0 (Version None)
Quarter: 2004Q2

REPORT INFORMATION
  Report Type: 
  Country: None (occurrence: None)
  Receive Date: 20040524
  Receipt Date: 20040505
  Transmission Date: 20050107
  Serious: Yes (Hospitalization, Other)
  Sender: FDA-Public Use
  Company Number: 8005856

PATIENT
  Age: 61 Year
  Sex: Female
  Weight: 69.5 kg

DRUGS (6)
  1. KEPPRA [Suspect]
     Indication: PARTIAL SEIZURES
     Dosage: 500 MG 2/D PO
     Route: 048
     Dates: start: 20040112, end: 20040214
  2. FUROSEMIDE [Concomitant]
  3. RALOXIFENE HCL [Concomitant]
  4. RAMIPRIL [Concomitant]
  5. WARFARIN SODIUM [Concomitant]
  6. PAROXETINE HCL [Concomitant]

REACTIONS (3)
  - LEUKOPENIA [None]
  - MYCOPLASMA INFECTION [None]
  - VIRAL INFECTION [None]
